FAERS Safety Report 12134180 (Version 1)
Quarter: 2016Q1

REPORT INFORMATION
  Report Type: Spontaneous
  Country: US (occurrence: US)
  Receive Date: 20160301
  Receipt Date: 20160301
  Transmission Date: 20160526
  Serious: No
  Sender: FDA-Public Use
  Company Number: US-GLAXOSMITHKLINE-US2016GSK028272

PATIENT
  Age: 58 Year
  Sex: Female

DRUGS (1)
  1. TANZEUM [Suspect]
     Active Substance: ALBIGLUTIDE
     Indication: TYPE 2 DIABETES MELLITUS
     Dosage: 30 MG, WE
     Route: 042
     Dates: start: 201508

REACTIONS (26)
  - Accidental exposure to product [Unknown]
  - Injection site extravasation [Unknown]
  - Pain [Unknown]
  - Rash pruritic [Recovered/Resolved]
  - Injury associated with device [Unknown]
  - Therapeutic response unexpected [Unknown]
  - Abdominal pain upper [Recovered/Resolved]
  - Diarrhoea [Unknown]
  - Dry throat [Unknown]
  - Rash papular [Recovered/Resolved]
  - Pruritus [Recovered/Resolved]
  - Device use error [Unknown]
  - Exposure via direct contact [Unknown]
  - Underdose [Unknown]
  - Impaired work ability [Recovered/Resolved]
  - Anal incontinence [Unknown]
  - Incorrect product storage [Unknown]
  - Wrong technique in product usage process [Unknown]
  - Injection site bruising [Recovered/Resolved]
  - Abdominal distension [Unknown]
  - Weight decreased [Unknown]
  - Rash [Recovered/Resolved]
  - Miliaria [Unknown]
  - Rash erythematous [Recovered/Resolved]
  - Breast atrophy [Unknown]
  - Frequent bowel movements [Unknown]

NARRATIVE: CASE EVENT DATE: 201508
